FAERS Safety Report 6837563-2 (Version None)
Quarter: 2010Q3

REPORT INFORMATION
  Report Type: 
  Country: None (occurrence: None)
  Receive Date: 20100713
  Receipt Date: 20070511
  Transmission Date: 20110219
  Serious: No
  Sender: FDA-Public Use
  Company Number: US-PFIZER INC-2007040589

PATIENT
  Sex: Female
  Weight: 49.1 kg

DRUGS (5)
  1. CHANTIX [Suspect]
     Indication: SMOKING CESSATION THERAPY
     Dates: start: 20070502
  2. FUROSEMIDE [Concomitant]
  3. HYDROCODONE BITARTRATE [Concomitant]
     Indication: PAIN IN EXTREMITY
  4. TERIPARATIDE [Concomitant]
     Indication: OSTEOPOROSIS
     Dates: end: 20070501
  5. WARFARIN SODIUM [Concomitant]
     Indication: THROMBOSIS

REACTIONS (2)
  - DIZZINESS [None]
  - NAUSEA [None]
